FAERS Safety Report 12387067 (Version 1)
Quarter: 2016Q2

REPORT INFORMATION
  Report Type: Report from Study
  Country: US (occurrence: US)
  Receive Date: 20160519
  Receipt Date: 20160519
  Transmission Date: 20160815
  Serious: No
  Sender: FDA-Public Use
  Company Number: US-MDT-ADR-2016-00477

PATIENT
  Age: 48 Year
  Sex: Male

DRUGS (6)
  1. BUPIVACAINE. [Suspect]
     Active Substance: BUPIVACAINE
     Dosage: 1.801MG/DAY
     Route: 037
     Dates: end: 20150917
  2. BUPIVACAINE. [Suspect]
     Active Substance: BUPIVACAINE
     Dosage: 2.401MG/DAY
     Route: 037
     Dates: start: 20150917
  3. COMPOUNDED BACLOFEN [Suspect]
     Active Substance: BACLOFEN
     Dosage: 48.03MCG/DAY
     Route: 037
     Dates: start: 20150917
  4. COMPOUNDED BACLOFEN [Suspect]
     Active Substance: BACLOFEN
     Dosage: 36.02MCG/DAY
     Route: 037
     Dates: end: 20150917
  5. DILAUDID [Suspect]
     Active Substance: HYDROMORPHONE HYDROCHLORIDE
     Dosage: 0.1501MG/DAY
     Route: 037
     Dates: end: 20150917
  6. DILAUDID [Suspect]
     Active Substance: HYDROMORPHONE HYDROCHLORIDE
     Dosage: 0.2001MG/DAY
     Route: 037
     Dates: start: 20150917

REACTIONS (3)
  - Hypoaesthesia [Recovered/Resolved]
  - Medical device site pain [Recovered/Resolved]
  - Adverse drug reaction [Recovered/Resolved]

NARRATIVE: CASE EVENT DATE: 20150917
